FAERS Safety Report 5328002-1 (Version None)
Quarter: 2007Q2

REPORT INFORMATION
  Report Type: 
  Country: None (occurrence: None)
  Receive Date: 20070517
  Receipt Date: 20070503
  Transmission Date: 20071010
  Serious: Yes (Other)
  Sender: FDA-Public Use
  Company Number: DE-SHR-DE-2007-008349

PATIENT
  Age: 32 Year
  Sex: Female

DRUGS (2)
  1. BETASERON [Suspect]
     Indication: MULTIPLE SCLEROSIS
     Route: 058
     Dates: start: 20050601, end: 20060601
  2. AZATHIOPRINE [Concomitant]
     Dates: start: 20070101

REACTIONS (7)
  - AGGRESSION [None]
  - DEPRESSION SUICIDAL [None]
  - GENERALISED OEDEMA [None]
  - PAIN [None]
  - PRURITUS GENERALISED [None]
  - RASH PUSTULAR [None]
  - URTICARIA [None]
